FAERS Safety Report 4583869-X (Version None)
Quarter: 2005Q1

REPORT INFORMATION
  Report Type: 
  Country: None (occurrence: None)
  Receive Date: 20050211
  Receipt Date: 20050126
  Transmission Date: 20050727
  Serious: Yes (Hospitalization)
  Sender: FDA-Public Use
  Company Number: 2005SE00571

PATIENT
  Age: 68 Year
  Sex: Female

DRUGS (2)
  1. SYMIBICORT TURBUHALER ^DRACO^ [Suspect]
     Indication: ASTHMA
     Dosage: 160/4.5 MCG BID
     Dates: start: 20031104, end: 20041121
  2. SPIRIVA [Concomitant]

REACTIONS (2)
  - HAEMATOMA [None]
  - MUSCLE SPASMS [None]
